FAERS Safety Report 7671389-5 (Version None)
Quarter: 2011Q3

REPORT INFORMATION
  Report Type: 
  Country: None (occurrence: None)
  Receive Date: 20110809
  Receipt Date: 20110805
  Transmission Date: 20111222
  Serious: Yes (Other)
  Sender: FDA-Public Use
  Company Number: DE-PFIZER INC-2011180746

PATIENT
  Age: 49 Year
  Sex: Male

DRUGS (4)
  1. SEROQUEL [Suspect]
     Dosage: 1000 MG, 1X/DAY
  2. ZOPICLONE [Suspect]
  3. LORAZEPAM [Suspect]
     Dosage: 1 MG, 3X/DAY
     Dates: start: 20110101
  4. VENLAFAXINE HCL [Suspect]

REACTIONS (2)
  - WITHDRAWAL SYNDROME [None]
  - DRUG DEPENDENCE [None]
